FAERS Safety Report 20877536 (Version 2)
Quarter: 2022Q2

REPORT INFORMATION
  Report Type: Spontaneous
  Country: US (occurrence: US)
  Receive Date: 20220526
  Receipt Date: 20220611
  Transmission Date: 20220721
  Serious: Yes (Life-Threatening, Hospitalization)
  Sender: FDA-Public Use
  Company Number: US-TEVA-2022-US-2039457

PATIENT
  Age: 34 Year
  Sex: Male

DRUGS (11)
  1. BACLOFEN [Suspect]
     Active Substance: BACLOFEN
     Indication: Withdrawal syndrome
     Dosage: THREE TIMES IN A DAY
     Route: 065
  2. GABAPENTIN [Suspect]
     Active Substance: GABAPENTIN
     Indication: Withdrawal syndrome
     Dosage: 200 MILLIGRAM DAILY;
     Route: 065
  3. HALOPERIDOL [Suspect]
     Active Substance: HALOPERIDOL
     Indication: Withdrawal syndrome
     Route: 065
  4. RISPERIDONE [Suspect]
     Active Substance: RISPERIDONE
     Indication: Withdrawal syndrome
     Dosage: .5 MILLIGRAM DAILY; ADMINISTERED UNDER A TRIAL
     Route: 065
  5. OLANZAPINE [Suspect]
     Active Substance: OLANZAPINE
     Indication: Withdrawal syndrome
     Route: 065
  6. 4-AMINO-3-PHENYLBUTYRIC ACID [Suspect]
     Active Substance: 4-AMINO-3-PHENYLBUTYRIC ACID
     Indication: Drug abuse
     Dosage: 1 GRAM DAILY; MIXED WITH WATER AND ADMINISTERED
     Route: 065
  7. 4-AMINO-3-PHENYLBUTYRIC ACID [Suspect]
     Active Substance: 4-AMINO-3-PHENYLBUTYRIC ACID
     Dosage: 4-5 G MIXED WITH WATER AND ADMINISTERED
     Route: 065
  8. 4-AMINO-3-PHENYLBUTYRIC ACID [Suspect]
     Active Substance: 4-AMINO-3-PHENYLBUTYRIC ACID
     Dosage: 8-12 G MIXED WITH WATER AND ADMINISTERED
     Route: 065
  9. 4-AMINO-3-PHENYLBUTYRIC ACID [Suspect]
     Active Substance: 4-AMINO-3-PHENYLBUTYRIC ACID
     Dosage: APPROXIMATELY 28.5 G MIXED WITH WATER AND ADMINISTERED
     Route: 065
  10. WELLBUTRIN [Suspect]
     Active Substance: BUPROPION HYDROCHLORIDE
     Indication: Attention deficit hyperactivity disorder
     Route: 065
  11. VYVANSE [Concomitant]
     Active Substance: LISDEXAMFETAMINE DIMESYLATE
     Indication: Attention deficit hyperactivity disorder
     Route: 065

REACTIONS (13)
  - Drug dependence [Recovered/Resolved]
  - Toxicity to various agents [Recovered/Resolved]
  - Drug abuse [Recovered/Resolved]
  - Encephalopathy [Recovered/Resolved]
  - Hallucination, auditory [Recovered/Resolved]
  - Dysarthria [Recovered/Resolved]
  - Hyperhidrosis [Recovered/Resolved]
  - Tachycardia [Recovered/Resolved]
  - Hallucination, visual [Recovered/Resolved]
  - Withdrawal syndrome [Recovered/Resolved]
  - Drug screen false positive [Unknown]
  - Drug ineffective [Unknown]
  - Road traffic accident [Unknown]
